FAERS Safety Report 8785304 (Version 1)
Quarter: 2012Q4

REPORT INFORMATION
  Report Type: Spontaneous
  Country: PT (occurrence: None)
  Receive Date: 20120831
  Receipt Date: 20120831
  Transmission Date: 20130627
  Serious: Yes (Hospitalization, Other)
  Sender: FDA-Public Use
  Company Number: 2012P1054304

PATIENT
  Age: 65 Year
  Sex: Female

DRUGS (3)
  1. CIPROFLOXACIN HYDROCHLORIDE [Suspect]
     Indication: INFECTED SKIN ULCER
  2. METHOTREXATE [Concomitant]
  3. BETAMETHASONE VALERATE [Concomitant]

REACTIONS (1)
  - Pustular psoriasis [None]
